FAERS Safety Report 15748413 (Version 4)
Quarter: 2019Q2

REPORT INFORMATION
  Report Type: Spontaneous
  Country: NL (occurrence: NL)
  Receive Date: 20181221
  Receipt Date: 20190613
  Transmission Date: 20190711
  Serious: Yes (Death, Other)
  Sender: FDA-Public Use
  Company Number: NL-AUROBINDO-AUR-APL-2018-060497

PATIENT

DRUGS (15)
  1. TAS 102 [Concomitant]
     Active Substance: TIPIRACIL HYDROCHLORIDE\TRIFLURIDINE
     Indication: PRODUCT USED FOR UNKNOWN INDICATION
     Dosage: UNK
     Route: 065
  2. CERITINIB [Concomitant]
     Active Substance: CERITINIB
     Indication: COLON CANCER STAGE III
  3. CAPECITABINE. [Suspect]
     Active Substance: CAPECITABINE
     Indication: LUNG NEOPLASM MALIGNANT
     Dosage: UNK (8 COURSES)
     Route: 065
  4. CAPECITABINE. [Suspect]
     Active Substance: CAPECITABINE
     Dosage: UNK
     Route: 065
     Dates: start: 2011
  5. CERITINIB [Concomitant]
     Active Substance: CERITINIB
     Indication: NON-SMALL CELL LUNG CANCER STAGE IV
  6. CARBOPLATIN. [Suspect]
     Active Substance: CARBOPLATIN
     Indication: NON-SMALL CELL LUNG CANCER STAGE IV
     Dosage: FIVE COURSES
     Route: 065
  7. CARBOPLATIN;PEMETREXED [Concomitant]
     Indication: COLON CANCER STAGE III
     Dosage: UNK
     Route: 065
     Dates: start: 201502
  8. CARBOPLATIN;PEMETREXED [Concomitant]
     Dosage: UNK
     Route: 065
     Dates: start: 201506
  9. CAPECITABINE. [Suspect]
     Active Substance: CAPECITABINE
     Indication: COLON CANCER
     Dosage: 1000 MILLIGRAM/SQ. METER, DAILY, (DAY 1-14 CYCLE; ONCE IN THREE WEEKS )
     Route: 065
  10. PEMETREXED. [Suspect]
     Active Substance: PEMETREXED
     Indication: NON-SMALL CELL LUNG CANCER STAGE IV
     Dosage: FIVE COURSES
     Route: 065
  11. CERITINIB [Concomitant]
     Active Substance: CERITINIB
     Indication: COLON CANCER
     Dosage: 600 MILLIGRAM, (3 WEEK)
     Route: 065
  12. IRINOTECAN [Concomitant]
     Active Substance: IRINOTECAN
     Indication: COLON CANCER STAGE III
     Dosage: UNK
     Route: 065
  13. OXALIPLATIN. [Suspect]
     Active Substance: OXALIPLATIN
     Indication: COLON CANCER STAGE III
  14. PEMETREXED. [Suspect]
     Active Substance: PEMETREXED
     Dosage: UNK
     Route: 065
     Dates: start: 201506
  15. OXALIPLATIN. [Suspect]
     Active Substance: OXALIPLATIN
     Indication: COLON CANCER
     Dosage: 130 MILLIGRAM/SQ. METER,UNK (8 COURSES)
     Route: 065
     Dates: start: 2011

REACTIONS (12)
  - Non-small cell lung cancer metastatic [Unknown]
  - Malignant pleural effusion [Unknown]
  - Metastases to adrenals [Unknown]
  - Colon cancer metastatic [Unknown]
  - Metastases to liver [Unknown]
  - Product use in unapproved indication [Unknown]
  - Nausea [Unknown]
  - Second primary malignancy [Unknown]
  - Diarrhoea [Unknown]
  - Palmar-plantar erythrodysaesthesia syndrome [Fatal]
  - Lung carcinoma cell type unspecified stage IV [Recovering/Resolving]
  - Malignant neoplasm progression [Unknown]

NARRATIVE: CASE EVENT DATE: 201506
